FAERS Safety Report 9452730 (Version 1)
Quarter: 2013Q3

REPORT INFORMATION
  Report Type: Spontaneous
  Country: US (occurrence: None)
  Receive Date: 20130808
  Receipt Date: 20130808
  Transmission Date: 20140515
  Serious: Yes (Hospitalization)
  Sender: FDA-Public Use
  Company Number: None

PATIENT
  Age: 84 None
  Sex: Male

DRUGS (1)
  1. ALBUTEROL AND IPRATROPIUM [Suspect]
     Indication: CHRONIC OBSTRUCTIVE PULMONARY DISEASE
     Route: 055
     Dates: start: 20130606, end: 20130625

REACTIONS (2)
  - Dyspnoea [None]
  - Angioedema [None]
